FAERS Safety Report 15747798 (Version 1)
Quarter: 2018Q4

REPORT INFORMATION
  Report Type: Spontaneous
  Country: US (occurrence: US)
  Receive Date: 20181221
  Receipt Date: 20181221
  Transmission Date: 20190205
  Serious: Yes (Hospitalization, Other)
  Sender: FDA-Public Use
  Company Number: US-JNJFOC-20181139135

PATIENT
  Age: 62 Year
  Sex: Male

DRUGS (6)
  1. CHRONULAC [Concomitant]
     Active Substance: LACTULOSE
     Indication: CONSTIPATION
     Dosage: 15 ML, BID
     Route: 048
  2. IMBRUVICA [Suspect]
     Active Substance: IBRUTINIB
     Indication: CHRONIC LYMPHOCYTIC LEUKAEMIA
     Route: 048
  3. MYCOSTATIN [Concomitant]
     Active Substance: NYSTATIN
     Dosage: 30 G, 10 DAYS
  4. SODIUM CHLORIDE. [Concomitant]
     Active Substance: SODIUM CHLORIDE
     Dosage: 3 ML, EVERY 8 HRS AS NEEDED
  5. VITAMIN B COMPLEX [Concomitant]
     Active Substance: CYANOCOBALAMIN\DEXPANTHENOL\NIACINAMIDE\PYRIDOXINE HYDROCHLORIDE\RIBOFLAVIN 5^-PHOSPHATE SODIUM\THIAMINE HYDROCHLORIDE\VITAMIN B COMPLEX
     Route: 048
  6. BACTROBAN [Concomitant]
     Active Substance: MUPIROCIN\MUPIROCIN CALCIUM
     Dosage: 15 G, UNK

REACTIONS (14)
  - Pneumonia [Recovering/Resolving]
  - Abdominal distension [Recovering/Resolving]
  - Hepatosplenomegaly [Recovering/Resolving]
  - Emphysema [Recovering/Resolving]
  - Haemoglobin abnormal [Recovering/Resolving]
  - Orthopnoea [Recovering/Resolving]
  - Pulmonary oedema [Recovering/Resolving]
  - Lymphadenopathy [Recovering/Resolving]
  - Pleural effusion [Recovering/Resolving]
  - Dyspnoea [Recovering/Resolving]
  - Herpes zoster [Recovering/Resolving]
  - Anaemia [Recovering/Resolving]
  - Rash [Recovering/Resolving]
  - Lymphocytosis [Recovering/Resolving]

NARRATIVE: CASE EVENT DATE: 201509
